FAERS Safety Report 6120682-6 (Version None)
Quarter: 2009Q1

REPORT INFORMATION
  Report Type: 
  Country: None (occurrence: None)
  Receive Date: 20090312
  Receipt Date: 20090312
  Transmission Date: 20090719
  Serious: No
  Sender: FDA-Public Use
  Company Number: None

PATIENT
  Age: 46 Year
  Sex: Female
  Weight: 77.1115 kg

DRUGS (1)
  1. TOPROL-XL [Suspect]
     Indication: HYPERTENSION
     Dosage: 25 MG QD PO ABOUT 3 YEARS
     Route: 048
     Dates: start: 20060101, end: 20090228

REACTIONS (4)
  - FATIGUE [None]
  - HYPERSOMNIA [None]
  - LETHARGY [None]
  - WEIGHT INCREASED [None]
